FAERS Safety Report 12892373 (Version 2)
Quarter: 2016Q4

REPORT INFORMATION
  Report Type: Report from Study
  Country: JP (occurrence: JP)
  Receive Date: 20161028
  Receipt Date: 20161102
  Transmission Date: 20170207
  Serious: Yes (Other)
  Sender: FDA-Public Use
  Company Number: JP-BRISTOL-MYERS SQUIBB COMPANY-BMS-2016-090435

PATIENT
  Age: 87 Year
  Sex: Female

DRUGS (1)
  1. NIVOLUMAB [Suspect]
     Active Substance: NIVOLUMAB
     Indication: MALIGNANT MELANOMA
     Dosage: UNK
     Route: 041
     Dates: start: 20150605

REACTIONS (3)
  - Malignant neoplasm progression [Unknown]
  - Eosinophilic pneumonia [Not Recovered/Not Resolved]
  - Bronchoalveolar lavage [Unknown]

NARRATIVE: CASE EVENT DATE: 20160913
